FAERS Safety Report 8854713 (Version 3)
Quarter: 2012Q4

REPORT INFORMATION
  Report Type: 
  Country: US (occurrence: US)
  Receive Date: 20121023
  Receipt Date: 20121211
  Transmission Date: 20130627
  Serious: No
  Sender: FDA-Public Use
  Company Number: US-PFIZER INC-2012264288

PATIENT
  Age: 56 Year
  Sex: Female
  Weight: 113.4 kg

DRUGS (5)
  1. NEURONTIN [Suspect]
     Indication: PAIN IN FOOT
     Dosage: 2 capsules of 300mg in morning, 1 capsule of 300mg in afternoon and 2 capsules of 300mg in night
     Route: 048
     Dates: end: 201209
  2. CYMBALTA [Concomitant]
     Dosage: 60 mg, 2x/day
  3. WELLBUTRIN [Concomitant]
     Dosage: 150 mg, 1x/day
  4. SEROQUEL [Concomitant]
     Dosage: 150 mg, 1x/day
  5. LORTAB [Concomitant]
     Dosage: UNK, 4x/day

REACTIONS (3)
  - Pain [Not Recovered/Not Resolved]
  - Emotional disorder [Unknown]
  - Crying [Unknown]
